FAERS Safety Report 5222656-6 (Version None)
Quarter: 2007Q1

REPORT INFORMATION
  Report Type: 
  Country: None (occurrence: None)
  Receive Date: 20061205
  Receipt Date: 20050819
  Transmission Date: 20070707
  Serious: No
  Sender: FDA-Public Use
  Company Number: 2005UW10566

PATIENT
  Age: 67 Year
  Sex: Female
  Weight: 78.0187 kg

DRUGS (4)
  1. PRILOSEC OTC [Suspect]
     Indication: DYSPEPSIA
     Dosage: 1 DF PO
     Route: 048
     Dates: start: 20050712, end: 20050712
  2. LIPITOR [Concomitant]
  3. NEXIUM [Concomitant]
  4. PEPCID COMPLETE [Concomitant]

REACTIONS (1)
  - HYPERSENSITIVITY [None]
